FAERS Safety Report 12060206 (Version 2)
Quarter: 2016Q1

REPORT INFORMATION
  Report Type: Spontaneous
  Country: US (occurrence: US)
  Receive Date: 20160210
  Receipt Date: 20160219
  Transmission Date: 20160526
  Serious: Yes (Hospitalization)
  Sender: FDA-Public Use
  Company Number: US-ALKERMES INC.-ALK-2016-000296

PATIENT

DRUGS (5)
  1. MULTIVITAMINS, PLAIN [Concomitant]
     Active Substance: VITAMINS
     Indication: PRODUCT USED FOR UNKNOWN INDICATION
     Dosage: UNK
     Route: 065
  2. METHIMAZOLE. [Concomitant]
     Active Substance: METHIMAZOLE
     Indication: HYPERTHYROIDISM
     Dosage: UNK
     Route: 065
  3. ATENOLOL. [Concomitant]
     Active Substance: ATENOLOL
     Indication: HYPERTHYROIDISM
     Dosage: UNK
     Route: 065
  4. SUBOXONE RECKITT [Concomitant]
     Indication: DRUG DEPENDENCE
     Dosage: 4 MG, UNK
     Dates: end: 20160203
  5. VIVITROL [Suspect]
     Active Substance: NALTREXONE
     Indication: DRUG DEPENDENCE
     Dosage: 380 MG, QMO
     Route: 030
     Dates: start: 20160204

REACTIONS (6)
  - Anger [Recovered/Resolved]
  - Loss of control of legs [Recovered/Resolved]
  - Confusional state [Recovered/Resolved]
  - Pain in extremity [Recovering/Resolving]
  - Hallucination [Recovered/Resolved]
  - Mental status changes [Recovered/Resolved]

NARRATIVE: CASE EVENT DATE: 20160204
